FAERS Safety Report 17129332 (Version 1)
Quarter: 2019Q4

REPORT INFORMATION
  Report Type: Spontaneous
  Country: US (occurrence: US)
  Receive Date: 20191209
  Receipt Date: 20191209
  Transmission Date: 20200122
  Serious: No
  Sender: FDA-Public Use
  Company Number: US-PFIZER INC-2019483486

PATIENT
  Age: 7 Month
  Sex: Male
  Weight: 8.16 kg

DRUGS (2)
  1. HYDROCORTISONE ACETATE. [Suspect]
     Active Substance: HYDROCORTISONE ACETATE
     Indication: DERMATITIS
     Dosage: UNK
     Route: 061
  2. TRIAMCINOLONE [Suspect]
     Active Substance: TRIAMCINOLONE
     Indication: DERMATITIS
     Dosage: 0.025

REACTIONS (3)
  - Application site discomfort [Unknown]
  - Therapeutic product effect incomplete [Unknown]
  - Application site pain [Unknown]
